FAERS Safety Report 4376698-3 (Version None)
Quarter: 2004Q2

REPORT INFORMATION
  Report Type: 
  Country: None (occurrence: None)
  Receive Date: 20040608
  Receipt Date: 20040527
  Transmission Date: 20050107
  Serious: No
  Sender: FDA-Public Use
  Company Number: 04H-163-0262456-00

PATIENT

DRUGS (7)
  1. LEUCOVORIN CALCIUM [Suspect]
     Indication: CHEMOTHERAPY
     Dosage: 300 MG, 300 MG IN 50 CM3 NACL,ONCE, INTRAVENOUS
     Route: 042
  2. GEMCITABINE [Suspect]
     Indication: CHEMOTHERAPY
     Dosage: 500 MG/M2, IN 100 CM3 NACL, ONCE, INTRAVENOUS
     Route: 042
  3. IRINOTECAN [Suspect]
     Indication: CHEMOTHERAPY
     Dosage: 80 MG/M2, ONCE, INTRAVENOUS
     Route: 042
  4. FLUOROURACIL [Suspect]
     Indication: CHEMOTHERAPY
     Dosage: SEE IMAGE
     Route: 042
  5. CISPLATIN [Suspect]
     Indication: CHEMOTHERAPY
     Dosage: 35 MG/M2, IN 50 CM3 NACL, ONCE, INTRAVENOUS
     Route: 042
  6. MANNITOL [Concomitant]
  7. SODIUM CHLORIDE INJ [Concomitant]

REACTIONS (1)
  - DEEP VEIN THROMBOSIS [None]
